FAERS Safety Report 10344497 (Version 1)
Quarter: 2014Q3

REPORT INFORMATION
  Report Type: Spontaneous
  Country: JP (occurrence: JP)
  Receive Date: 20140728
  Receipt Date: 20140728
  Transmission Date: 20150326
  Serious: Yes (Hospitalization)
  Sender: FDA-Public Use
  Company Number: PHHY2014JP091283

PATIENT
  Sex: Female

DRUGS (6)
  1. RIVASTIGMIN [Suspect]
     Active Substance: RIVASTIGMINE
     Indication: DEMENTIA WITH LEWY BODIES
     Dosage: 4.5 MG, (CUT INTO TWO HALVES)
     Route: 062
  2. RIVASTIGMIN [Suspect]
     Active Substance: RIVASTIGMINE
     Dosage: 9 MG, QD
     Route: 062
  3. LOCOID [Concomitant]
     Active Substance: HYDROCORTISONE BUTYRATE
     Dosage: UNK UKN, UNK
  4. DEPAS [Concomitant]
     Active Substance: ETIZOLAM
     Dosage: UNK UKN, UNK
  5. RIVASTIGMIN [Suspect]
     Active Substance: RIVASTIGMINE
     Dosage: 13.5 MG, QD
     Route: 062
  6. RIVASTIGMIN [Suspect]
     Active Substance: RIVASTIGMINE
     Dosage: 9 MG, QD
     Route: 062

REACTIONS (8)
  - Altered state of consciousness [Unknown]
  - Drug prescribing error [Unknown]
  - Somnolence [Unknown]
  - Bradycardia [Unknown]
  - Off label use [Unknown]
  - Application site pruritus [Unknown]
  - Aggression [Unknown]
  - Application site erythema [Unknown]
